FAERS Safety Report 11756567 (Version 1)
Quarter: 2015Q4

REPORT INFORMATION
  Report Type: Report from Study
  Country: GB (occurrence: GB)
  Receive Date: 20151119
  Receipt Date: 20151119
  Transmission Date: 20160304
  Serious: Yes (Other)
  Sender: FDA-Public Use
  Company Number: GB-ROCHE-1661693

PATIENT

DRUGS (3)
  1. OXALIPLATIN. [Suspect]
     Active Substance: OXALIPLATIN
     Indication: GASTROOESOPHAGEAL CANCER
     Dosage: ON DAY 1 OF CYCLE
     Route: 065
  2. LAPATINIB [Suspect]
     Active Substance: LAPATINIB
     Indication: GASTROOESOPHAGEAL CANCER
     Route: 048
  3. CAPECITABINE. [Suspect]
     Active Substance: CAPECITABINE
     Indication: GASTROOESOPHAGEAL CANCER
     Dosage: ON DAY 1 TO 14 OF CYCLE
     Route: 048

REACTIONS (13)
  - Candida infection [Unknown]
  - Gastrointestinal pain [Unknown]
  - Nausea [Unknown]
  - Small intestinal obstruction [Unknown]
  - Hypoxia [Unknown]
  - Syncope [Unknown]
  - Dyspepsia [Unknown]
  - Neutropenia [Unknown]
  - Anastomotic leak [Unknown]
  - Mucosal inflammation [Unknown]
  - Diarrhoea [Unknown]
  - Atelectasis [Unknown]
  - Weight decreased [Unknown]
